FAERS Safety Report 8962132 (Version 3)
Quarter: 2013Q1

REPORT INFORMATION
  Report Type: Spontaneous
  Country: JP (occurrence: JP)
  Receive Date: 20121212
  Receipt Date: 20130208
  Transmission Date: 20140127
  Serious: Yes (Hospitalization)
  Sender: FDA-Public Use
  Company Number: JP-UCBSA-072749

PATIENT
  Age: 32 Year
  Sex: Male
  Weight: 40 kg

DRUGS (10)
  1. E KEPPRA [Suspect]
     Indication: EPILEPSY
     Route: 048
     Dates: start: 20101118, end: 20110107
  2. E KEPPRA [Suspect]
     Indication: EPILEPSY
     Route: 048
     Dates: start: 20110108, end: 20110204
  3. E KEPPRA [Suspect]
     Indication: EPILEPSY
     Route: 048
     Dates: start: 20110205, end: 20110426
  4. E KEPPRA [Suspect]
     Indication: EPILEPSY
     Route: 048
     Dates: start: 20110427, end: 20120501
  5. E KEPPRA [Suspect]
     Indication: EPILEPSY
     Dosage: DAILY DOSE 2000 MG
     Route: 048
     Dates: start: 20120502
  6. TEGRETOL [Concomitant]
     Indication: EPILEPSY
     Dosage: DAILY DOSE 750 MG
     Route: 048
     Dates: start: 20070810
  7. PHENOBAL [Concomitant]
     Indication: EPILEPSY
     Dosage: DAILY DOSE 150 MG
     Route: 048
     Dates: start: 20070829
  8. GABAPEN [Concomitant]
     Indication: EPILEPSY
     Dosage: DAILY DOSE: 1800 MG
     Route: 048
  9. SCOPOLIA EXTRACT [Concomitant]
     Indication: SALIVARY HYPERSECRETION
     Route: 048
  10. LENDORMIN D [Concomitant]
     Indication: INSOMNIA
     Route: 048
     Dates: start: 20110613, end: 20120206

REACTIONS (2)
  - Social stay hospitalisation [Unknown]
  - Urinary retention [Recovering/Resolving]
